FAERS Safety Report 22352860 (Version 3)
Quarter: 2023Q2

REPORT INFORMATION
  Report Type: Report from Study
  Country: US (occurrence: US)
  Receive Date: 20230523
  Receipt Date: 20230608
  Transmission Date: 20230722
  Serious: No
  Sender: FDA-Public Use
  Company Number: US-002147023-NVSC2023US116073

PATIENT
  Sex: Male

DRUGS (1)
  1. PROMACTA [Suspect]
     Active Substance: ELTROMBOPAG OLAMINE
     Indication: Product used for unknown indication
     Dosage: 75 MG
     Route: 048

REACTIONS (7)
  - Blood disorder [Unknown]
  - Contusion [Unknown]
  - Skin injury [Unknown]
  - Sleep disorder [Unknown]
  - Pain [Unknown]
  - Visual impairment [Unknown]
  - Platelet count increased [Unknown]
